FAERS Safety Report 11518922 (Version 3)
Quarter: 2016Q2

REPORT INFORMATION
  Report Type: Report from Study
  Country: US (occurrence: US)
  Receive Date: 20150917
  Receipt Date: 20160516
  Transmission Date: 20160815
  Serious: No
  Sender: FDA-Public Use
  Company Number: GXBR2015US001849

PATIENT
  Age: 56 Year
  Sex: Female

DRUGS (1)
  1. GLATOPA [Suspect]
     Active Substance: GLATIRAMER ACETATE
     Indication: PRODUCT USED FOR UNKNOWN INDICATION
     Dosage: 20 MG, QD
     Route: 065
     Dates: start: 20150803

REACTIONS (5)
  - Pain [Unknown]
  - Injection site reaction [Unknown]
  - Injection site injury [Not Recovered/Not Resolved]
  - Injection site pain [Unknown]
  - Nausea [Unknown]

NARRATIVE: CASE EVENT DATE: 20150803
